FAERS Safety Report 6420469-0 (Version None)
Quarter: 2009Q4

REPORT INFORMATION
  Report Type: 
  Country: None (occurrence: None)
  Receive Date: 20091021
  Receipt Date: 20090603
  Transmission Date: 20100525
  Serious: No
  Sender: FDA-Public Use
  Company Number: SPV1-2009-01120

PATIENT
  Sex: Male

DRUGS (1)
  1. VYVANSE [Suspect]
     Dosage: 40 MG, 1X/DAY:QD, ORAL : 60 MG, 1X/DAY:QD, ORAL
     Route: 048

REACTIONS (4)
  - CHEST PAIN [None]
  - DYSPNOEA [None]
  - FLAT AFFECT [None]
  - WEIGHT DECREASED [None]
